FAERS Safety Report 26064906 (Version 1)
Quarter: 2025Q4

REPORT INFORMATION
  Report Type: Spontaneous
  Country: JP (occurrence: JP)
  Receive Date: 20251119
  Receipt Date: 20251119
  Transmission Date: 20260119
  Serious: Yes (Other)
  Sender: ROCHE
  Company Number: JP-CHUGAI-2025036591

PATIENT
  Age: 7 Year
  Sex: Male

DRUGS (1)
  1. HEMLIBRA [Suspect]
     Active Substance: EMICIZUMAB-KXWH
     Indication: Haemophilia A without inhibitors
     Dosage: 60 MILLIGRAM, ONCE/2WEEKS
     Route: 058
     Dates: start: 20190531

REACTIONS (2)
  - Haemorrhage intracranial [Recovering/Resolving]
  - Coagulation time prolonged [Unknown]

NARRATIVE: CASE EVENT DATE: 20250901
